FAERS Safety Report 13842151 (Version 1)
Quarter: 2017Q3

REPORT INFORMATION
  Report Type: Spontaneous
  Country: ES (occurrence: ES)
  Receive Date: 20170807
  Receipt Date: 20170807
  Transmission Date: 20171127
  Serious: Yes (Other)
  Sender: FDA-Public Use
  Company Number: ES-GILEAD-2017-0286552

PATIENT
  Age: 56 Year
  Sex: Male
  Weight: 90 kg

DRUGS (11)
  1. BENADON [Concomitant]
     Active Substance: PYRIDOXINE HYDROCHLORIDE
  2. BENERVA [Concomitant]
     Active Substance: THIAMINE
  3. SOFOSBUVIR [Suspect]
     Active Substance: SOFOSBUVIR
     Indication: CHRONIC HEPATITIS C
     Dosage: UNK MG, UNK
     Route: 048
     Dates: start: 20170209
  4. LYRICA [Concomitant]
     Active Substance: PREGABALIN
  5. PAROXETINE. [Concomitant]
     Active Substance: PAROXETINE
  6. LORAZEPAM. [Concomitant]
     Active Substance: LORAZEPAM
  7. RIBAVIRINA [Suspect]
     Active Substance: RIBAVIRIN
     Indication: CHRONIC HEPATITIS C
     Route: 048
     Dates: start: 20170209
  8. LORMETAZEPAM [Concomitant]
     Active Substance: LORMETAZEPAM
  9. METFORMIN [Concomitant]
     Active Substance: METFORMIN HYDROCHLORIDE
     Route: 048
  10. DAKLINZA [Suspect]
     Active Substance: DACLATASVIR
     Indication: CHRONIC HEPATITIS C
     Route: 048
     Dates: start: 20170209
  11. OMEPRAZOL                          /00661201/ [Concomitant]
     Active Substance: OMEPRAZOLE

REACTIONS (2)
  - Abnormal behaviour [Not Recovered/Not Resolved]
  - Amnesia [Not Recovered/Not Resolved]

NARRATIVE: CASE EVENT DATE: 20170420
